FAERS Safety Report 25590478 (Version 1)
Quarter: 2025Q3

REPORT INFORMATION
  Report Type: Spontaneous
  Country: EU (occurrence: EU)
  Receive Date: 20250722
  Receipt Date: 20250722
  Transmission Date: 20251020
  Serious: Yes (Hospitalization)
  Sender: COSETTE PHARMACEUTICALS INC
  Company Number: EU-COSETTE-CP2025PT000689

PATIENT
  Age: 48 Year
  Sex: Male

DRUGS (1)
  1. BENICAR [Suspect]
     Active Substance: OLMESARTAN MEDOXOMIL
     Indication: Hypertension
     Route: 065

REACTIONS (1)
  - Hepatitis syphilitic [Recovered/Resolved]
